FAERS Safety Report 6305976-3 (Version None)
Quarter: 2009Q3

REPORT INFORMATION
  Report Type: 
  Country: None (occurrence: None)
  Receive Date: 20090812
  Receipt Date: 20090804
  Transmission Date: 20100115
  Serious: Yes (Death, Other)
  Sender: FDA-Public Use
  Company Number: US-PFIZER INC-2009235559

PATIENT
  Sex: Female
  Weight: 45.351 kg

DRUGS (7)
  1. REVATIO [Suspect]
     Indication: PULMONARY HYPERTENSION
     Dosage: 20 MG, 3X/DAY
     Dates: start: 20071130
  2. COUMADIN [Concomitant]
  3. IRON [Concomitant]
  4. ZYPREXA [Concomitant]
  5. AMLODIPINE [Concomitant]
  6. ZAROXOLYN [Concomitant]
  7. PREVACID [Concomitant]

REACTIONS (2)
  - PULMONARY HYPERTENSION [None]
  - RIGHT VENTRICULAR FAILURE [None]
